FAERS Safety Report 10158346 (Version 2)
Quarter: 2014Q2

REPORT INFORMATION
  Report Type: Report from Study
  Country: CA (occurrence: CA)
  Receive Date: 20140507
  Receipt Date: 20140507
  Transmission Date: 20141212
  Serious: Yes (Other)
  Sender: FDA-Public Use
  Company Number: CA-ABBVIE-13P-028-1126513-00

PATIENT
  Age: 22 Year
  Sex: Female

DRUGS (4)
  1. HUMIRA [Suspect]
     Indication: CROHN^S DISEASE
     Dates: end: 2006
  2. HUMIRA [Suspect]
     Dates: end: 201205
  3. HUMIRA [Suspect]
     Dates: start: 201306
  4. HUMIRA [Suspect]
     Route: 058
     Dates: start: 20130724

REACTIONS (10)
  - Abdominal adhesions [Unknown]
  - Ileostomy [Unknown]
  - Intestinal resection [Unknown]
  - Abscess [Unknown]
  - Proctocolectomy [Unknown]
  - Intestinal resection [Unknown]
  - Ileostomy [Unknown]
  - Pain of skin [Not Recovered/Not Resolved]
  - Crohn^s disease [Not Recovered/Not Resolved]
  - Crohn^s disease [Unknown]
